FAERS Safety Report 22065536 (Version 4)
Quarter: 2023Q2

REPORT INFORMATION
  Report Type: Report from Study
  Country: BG (occurrence: BG)
  Receive Date: 20230306
  Receipt Date: 20230515
  Transmission Date: 20230721
  Serious: Yes (Hospitalization)
  Sender: FDA-Public Use
  Company Number: BG-PFIZER INC-PV202300038821

PATIENT
  Age: 77 Year
  Sex: Male
  Weight: 70 kg

DRUGS (3)
  1. TALAZOPARIB [Suspect]
     Active Substance: TALAZOPARIB
     Indication: Prostate cancer
     Dosage: 1X/DAY (QD)
     Route: 048
     Dates: start: 20221026, end: 20230227
  2. ENZALUTAMIDE [Suspect]
     Active Substance: ENZALUTAMIDE
     Indication: Prostate cancer
     Dosage: 160 MG, 1X/DAY (QD)
     Route: 048
     Dates: start: 20221026, end: 20230227
  3. SINTROM [Suspect]
     Active Substance: ACENOCOUMAROL
     Indication: Cardiac failure
     Dosage: SCHEME (1ST DAY - 1 TABL., 2ND DAY 1/2 TABL., 3RD AND 4-TH DAY - 1/4 TABL.), MOST RECENT 0.5 TABLET
     Dates: start: 20230224, end: 20230227

REACTIONS (1)
  - Pancytopenia [Recovered/Resolved]

NARRATIVE: CASE EVENT DATE: 20230228
